FAERS Safety Report 6548977-2 (Version None)
Quarter: 2010Q1

REPORT INFORMATION
  Report Type: 
  Country: None (occurrence: None)
  Receive Date: 20100125
  Receipt Date: 20100113
  Transmission Date: 20100710
  Serious: Yes (Hospitalization)
  Sender: FDA-Public Use
  Company Number: US-EISAI INC.-E7272-00045-SPO-US

PATIENT
  Sex: Male

DRUGS (3)
  1. ONTAK [Suspect]
     Route: 041
     Dates: start: 20090201
  2. ONTAK [Suspect]
     Dosage: UNKNOWN
     Route: 041
     Dates: start: 20060701, end: 20060701
  3. TARGRETIN [Suspect]
     Dosage: UNKNOWN
     Route: 048

REACTIONS (1)
  - PULMONARY FIBROSIS [None]
